FAERS Safety Report 4388403-5 (Version None)
Quarter: 2004Q2

REPORT INFORMATION
  Report Type: 
  Country: None (occurrence: None)
  Receive Date: 20040625
  Receipt Date: 20040615
  Transmission Date: 20050107
  Serious: Yes (Hospitalization, Other)
  Sender: FDA-Public Use
  Company Number: HQ2238608MAY2002

PATIENT
  Age: 32 Year
  Sex: Male
  Weight: 65.7 kg

DRUGS (4)
  1. RAPAMUNE [Suspect]
     Indication: GLOMERULONEPHRITIS CHRONIC
     Dosage: 5 MG 1X PER 1 DAY, ORAL
     Route: 048
     Dates: start: 20020315, end: 20020329
  2. LABETALOL HCL [Concomitant]
  3. NORVASC [Concomitant]
  4. HYDROCHLOROTHIAZIDE [Concomitant]

REACTIONS (1)
  - RENAL FAILURE ACUTE [None]
